FAERS Safety Report 7617486-1 (Version None)
Quarter: 2011Q3

REPORT INFORMATION
  Report Type: 
  Country: None (occurrence: None)
  Receive Date: 20110718
  Receipt Date: 20110711
  Transmission Date: 20111222
  Serious: No
  Sender: FDA-Public Use
  Company Number: US-PFIZER INC-2011156471

PATIENT
  Sex: Female
  Weight: 75.3 kg

DRUGS (1)
  1. PREMARIN [Suspect]
     Indication: VULVOVAGINAL DRYNESS
     Dosage: UNK, WEEKLY
     Route: 067
     Dates: start: 20110301

REACTIONS (4)
  - DRUG INEFFECTIVE [None]
  - BURNING SENSATION [None]
  - RASH [None]
  - FUNGAL INFECTION [None]
